FAERS Safety Report 12319495 (Version 2)
Quarter: 2016Q2

REPORT INFORMATION
  Report Type: Spontaneous
  Country: IL (occurrence: IL)
  Receive Date: 20160429
  Receipt Date: 20160616
  Transmission Date: 20160815
  Serious: Yes (Other)
  Sender: FDA-Public Use
  Company Number: IL-SA-2016SA084282

PATIENT
  Sex: Female

DRUGS (4)
  1. CAPRELSA [Suspect]
     Active Substance: VANDETANIB
     Indication: MEDULLARY THYROID CANCER
     Route: 048
  2. CAPRELSA [Suspect]
     Active Substance: VANDETANIB
     Indication: CUSHING^S SYNDROME
     Route: 048
  3. CAPRELSA [Suspect]
     Active Substance: VANDETANIB
     Indication: MEDULLARY THYROID CANCER
     Route: 048
  4. CAPRELSA [Suspect]
     Active Substance: VANDETANIB
     Indication: CUSHING^S SYNDROME
     Route: 048

REACTIONS (1)
  - Electrocardiogram QT prolonged [Recovered/Resolved]
